FAERS Safety Report 6036221-4 (Version None)
Quarter: 2009Q1

REPORT INFORMATION
  Report Type: 
  Country: None (occurrence: None)
  Receive Date: 20090113
  Receipt Date: 20090109
  Transmission Date: 20090719
  Serious: Yes (Hospitalization)
  Sender: FDA-Public Use
  Company Number: US-B.I. PHARMACEUTICALS,INC./RIDGEFIELD-2008-BP-01867BP

PATIENT
  Sex: Female

DRUGS (11)
  1. SPIRIVA [Suspect]
     Indication: CHRONIC OBSTRUCTIVE PULMONARY DISEASE
     Dosage: 18MCG
     Route: 055
     Dates: start: 20070101
  2. SPIRIVA [Suspect]
     Indication: EMPHYSEMA
  3. KCI [Concomitant]
  4. SPIRONOLACTONE [Concomitant]
     Indication: CARDIAC DISORDER
  5. CARVEDILOL [Concomitant]
     Indication: CARDIAC DISORDER
  6. WARFARIN SODIUM [Concomitant]
     Indication: CARDIAC ASSISTANCE DEVICE USER
  7. JANUVIA [Concomitant]
     Indication: DIABETES MELLITUS
  8. GABAPENTIN [Concomitant]
     Indication: PAIN IN EXTREMITY
  9. GEMFIBROZIL [Concomitant]
     Indication: CARDIAC DISORDER
  10. FUROSEMIDE [Concomitant]
  11. PREVACID [Concomitant]
     Indication: ABDOMINAL DISCOMFORT

REACTIONS (6)
  - ATRIAL FIBRILLATION [None]
  - DRUG INEFFECTIVE [None]
  - INCORRECT ROUTE OF DRUG ADMINISTRATION [None]
  - INCREASED UPPER AIRWAY SECRETION [None]
  - RHINORRHOEA [None]
  - URINE ABNORMALITY [None]
